FAERS Safety Report 7995707-3 (Version None)
Quarter: 2011Q4

REPORT INFORMATION
  Report Type: 
  Country: None (occurrence: None)
  Receive Date: 20111220
  Receipt Date: 20111208
  Transmission Date: 20120403
  Serious: Yes (Hospitalization, Other)
  Sender: FDA-Public Use
  Company Number: BR-ROCHE-1005091

PATIENT
  Sex: Female

DRUGS (1)
  1. XOLAIR [Suspect]
     Indication: PRODUCT USED FOR UNKNOWN INDICATION
     Dates: start: 20090701

REACTIONS (7)
  - WHITE BLOOD CELL DISORDER [None]
  - URINARY TRACT INFECTION [None]
  - BLOOD IMMUNOGLOBULIN E INCREASED [None]
  - VOMITING [None]
  - PAIN [None]
  - ASTHMA [None]
  - LUNG DISORDER [None]
